FAERS Safety Report 13214369 (Version 1)
Quarter: 2017Q1

REPORT INFORMATION
  Report Type: Report from Study
  Country: None (occurrence: US)
  Receive Date: 20170210
  Receipt Date: 20170210
  Transmission Date: 20170428
  Serious: Yes (Hospitalization)
  Sender: FDA-Public Use
  Company Number: US-ABBVIE-17P-163-1870639-00

PATIENT
  Age: 6 Month
  Sex: Male
  Weight: 6.8 kg

DRUGS (2)
  1. PROPANOLON [Concomitant]
     Indication: PRODUCT USED FOR UNKNOWN INDICATION
  2. SYNAGIS [Suspect]
     Active Substance: PALIVIZUMAB
     Indication: ANTIVIRAL PROPHYLAXIS
     Route: 030

REACTIONS (3)
  - Diaphragmatic hernia [Unknown]
  - Gastrointestinal infection [Unknown]
  - Vomiting [Unknown]

NARRATIVE: CASE EVENT DATE: 20170202
